FAERS Safety Report 23078070 (Version 1)
Quarter: 2023Q4

REPORT INFORMATION
  Report Type: Report from Study
  Country: JP (occurrence: JP)
  Receive Date: 20231018
  Receipt Date: 20231018
  Transmission Date: 20240110
  Serious: Yes (Life-Threatening, Other)
  Sender: FDA-Public Use
  Company Number: JP-ASTELLAS-2023JP002619

PATIENT
  Age: 54 Year
  Sex: Female
  Weight: 45.9 kg

DRUGS (4)
  1. ENFORTUMAB VEDOTIN [Suspect]
     Active Substance: ENFORTUMAB VEDOTIN
     Indication: Transitional cell carcinoma
     Route: 042
     Dates: start: 20211206, end: 20211217
  2. ENFORTUMAB VEDOTIN [Suspect]
     Active Substance: ENFORTUMAB VEDOTIN
     Dosage: 1.0 MG/KG, UNKNOWN FREQ.
     Route: 042
     Dates: start: 20211224, end: 20211224
  3. ENFORTUMAB VEDOTIN [Suspect]
     Active Substance: ENFORTUMAB VEDOTIN
     Dosage: 0.875 MG/KG, UNKNOWN FREQ.
     Route: 042
     Dates: start: 20220107, end: 20220121
  4. ENFORTUMAB VEDOTIN [Suspect]
     Active Substance: ENFORTUMAB VEDOTIN
     Dosage: 1.0 MG/KG, UNKNOWN FREQ.
     Route: 042
     Dates: start: 20220207, end: 20220408

REACTIONS (2)
  - Platelet count decreased [Recovered/Resolved]
  - Anaemia [Recovering/Resolving]

NARRATIVE: CASE EVENT DATE: 20211209
